FAERS Safety Report 7902896-5 (Version None)
Quarter: 2011Q4

REPORT INFORMATION
  Report Type: 
  Country: None (occurrence: None)
  Receive Date: 20111107
  Receipt Date: 20111025
  Transmission Date: 20120403
  Serious: Yes (Other)
  Sender: FDA-Public Use
  Company Number: WAES 1008USA03517

PATIENT
  Age: 72 Year
  Sex: Male

DRUGS (10)
  1. BISOPROLOL [Concomitant]
  2. ZOCOR [Suspect]
     Indication: ACUTE CORONARY SYNDROME
     Dosage: 40 MG/DAILY
     Route: 048
     Dates: start: 20080104, end: 20101025
  3. ACETAMINOPHEN (+) DIHYDROCODEINE BITARTR [Concomitant]
  4. CANDESARTAN CILEXETIL [Concomitant]
  5. PLACEBO [Suspect]
     Indication: ACUTE CORONARY SYNDROME
     Route: 048
     Dates: start: 20080104, end: 20100725
  6. PLACEBO [Suspect]
     Indication: ACUTE CORONARY SYNDROME
     Route: 048
     Dates: start: 20080104, end: 20100725
  7. ASPIRIN [Concomitant]
  8. LANSOPRAZOLE [Concomitant]
  9. IMDUR [Concomitant]
  10. ACETAMINOPHEN [Concomitant]

REACTIONS (1)
  - PROSTATE CANCER [None]
